FAERS Safety Report 7726897-5 (Version None)
Quarter: 2011Q3

REPORT INFORMATION
  Report Type: 
  Country: None (occurrence: None)
  Receive Date: 20110902
  Receipt Date: 20110830
  Transmission Date: 20111222
  Serious: Yes (Disabling)
  Sender: FDA-Public Use
  Company Number: GB-MERCK-1108GBR00132

PATIENT
  Age: 82 Year
  Sex: Female
  Weight: 62 kg

DRUGS (17)
  1. FOSAMAX [Suspect]
     Route: 048
  2. ATENOLOL [Concomitant]
     Route: 065
  3. DOMPERIDONE [Concomitant]
     Route: 065
  4. ZOPICLONE [Concomitant]
     Indication: NECK PAIN
     Route: 065
  5. ACETAMINOPHEN [Concomitant]
     Route: 065
  6. SENNA [Concomitant]
     Route: 065
  7. LANSOPRAZOLE [Concomitant]
     Route: 065
  8. SIMVASTATIN [Concomitant]
     Route: 048
  9. DONEPEZIL HCL [Suspect]
     Route: 048
     Dates: start: 20060101
  10. LISINOPRIL [Concomitant]
     Route: 048
  11. METFORMIN [Concomitant]
     Route: 065
  12. TOLBUTAMIDE [Concomitant]
     Route: 065
  13. AMLODIPINE [Concomitant]
     Route: 065
  14. ASPIRIN [Concomitant]
     Route: 065
  15. CITALOPRAM [Concomitant]
     Route: 065
  16. FUROSEMIDE [Concomitant]
     Route: 065
  17. LETROZOLE [Concomitant]
     Route: 065

REACTIONS (3)
  - NAUSEA [None]
  - VOMITING [None]
  - WEIGHT DECREASED [None]
